FAERS Safety Report 6391251-8 (Version None)
Quarter: 2009Q4

REPORT INFORMATION
  Report Type: 
  Country: None (occurrence: None)
  Receive Date: 20091006
  Receipt Date: 20091006
  Transmission Date: 20100525
  Serious: Yes (Other)
  Sender: FDA-Public Use
  Company Number: None

PATIENT
  Age: 24 Year
  Sex: Female

DRUGS (1)
  1. PREPSOLUTION POVIDONE IODINE 10% MEDLINE [Suspect]
     Indication: DELIVERY
     Dosage: TOP
     Route: 061
     Dates: start: 20060823, end: 20090823

REACTIONS (1)
  - CHEMICAL BURN OF SKIN [None]
